FAERS Safety Report 6564665-0 (Version None)
Quarter: 2010Q1

REPORT INFORMATION
  Report Type: 
  Country: None (occurrence: None)
  Receive Date: 20100201
  Receipt Date: 20100119
  Transmission Date: 20100710
  Serious: Yes (Hospitalization)
  Sender: FDA-Public Use
  Company Number: JP-AMGEN-US372687

PATIENT
  Sex: Male
  Weight: 53 kg

DRUGS (9)
  1. ENBREL [Suspect]
     Indication: RHEUMATOID ARTHRITIS
     Route: 058
     Dates: start: 20080909, end: 20090622
  2. PREDONINE [Suspect]
     Indication: RHEUMATOID ARTHRITIS
     Route: 048
     Dates: start: 19980101
  3. PARIET [Concomitant]
     Dosage: UNSPECIFIED
     Route: 048
  4. ADEFURONIC [Concomitant]
     Indication: RHEUMATOID ARTHRITIS
     Dosage: UNSPECIFIED
     Route: 048
  5. CYTOTEC [Concomitant]
     Dosage: UNSPECIFIED
     Route: 048
  6. ALFACALCIDOL [Concomitant]
     Dosage: UNSPECIFIED
     Route: 048
  7. ISCOTIN [Concomitant]
     Indication: ANTIBIOTIC PROPHYLAXIS
     Route: 048
     Dates: start: 20080909
  8. BUCILLAMINE [Concomitant]
     Indication: RHEUMATOID ARTHRITIS
     Route: 048
     Dates: start: 20080215
  9. ALENDRONATE SODIUM [Concomitant]
     Dosage: UNSPECIFIED
     Route: 048

REACTIONS (2)
  - BRONCHOPULMONARY ASPERGILLOSIS [None]
  - HAEMOPTYSIS [None]
